FAERS Safety Report 25265881 (Version 1)
Quarter: 2025Q2

REPORT INFORMATION
  Report Type: Spontaneous
  Country: IN (occurrence: IN)
  Receive Date: 20250503
  Receipt Date: 20250503
  Transmission Date: 20250717
  Serious: Yes (Hospitalization, Other)
  Sender: UNICHEM
  Company Number: IN-UNICHEM LABORATORIES LIMITED-UNI-2024-IN-004145

PATIENT

DRUGS (2)
  1. DONEPEZIL [Suspect]
     Active Substance: DONEPEZIL
     Indication: Schizophrenia
     Route: 048
  2. MEMANTINE [Suspect]
     Active Substance: MEMANTINE
     Indication: Schizophrenia
     Route: 048

REACTIONS (1)
  - Atrioventricular block second degree [Recovered/Resolved]
